FAERS Safety Report 10729757 (Version 1)
Quarter: 2015Q1

REPORT INFORMATION
  Report Type: Spontaneous
  Country: US (occurrence: US)
  Receive Date: 20150122
  Receipt Date: 20150122
  Transmission Date: 20150721
  Serious: No
  Sender: FDA-Public Use
  Company Number: US-BAUSCH-SYM-2014-21514

PATIENT
  Age: 68 Year
  Sex: Female
  Weight: 52.21 kg

DRUGS (3)
  1. NIFEDIAC CC [Suspect]
     Active Substance: NIFEDIPINE
     Indication: PRODUCT USED FOR UNKNOWN INDICATION
     Route: 048
     Dates: start: 2014
  2. RAMIPRIL. [Concomitant]
     Active Substance: RAMIPRIL
     Indication: PRODUCT USED FOR UNKNOWN INDICATION
  3. BYSTOLIC [Concomitant]
     Active Substance: NEBIVOLOL HYDROCHLORIDE
     Indication: PRODUCT USED FOR UNKNOWN INDICATION

REACTIONS (5)
  - Feeling hot [Unknown]
  - Palpitations [Unknown]
  - Feeling abnormal [Unknown]
  - Insomnia [Unknown]
  - Ear discomfort [Unknown]

NARRATIVE: CASE EVENT DATE: 2014
